FAERS Safety Report 22374557 (Version 1)
Quarter: 2023Q2

REPORT INFORMATION
  Report Type: Spontaneous
  Country: CA (occurrence: CA)
  Receive Date: 20230526
  Receipt Date: 20230526
  Transmission Date: 20230722
  Serious: Yes (Death, Hospitalization, Other)
  Sender: FDA-Public Use
  Company Number: CA-SAMSUNG BIOEPIS-SB-2022-21396

PATIENT
  Age: 87 Year
  Sex: Female
  Weight: 74 kg

DRUGS (2)
  1. INFLIXIMAB [Suspect]
     Active Substance: INFLIXIMAB
     Indication: Rheumatoid arthritis
     Route: 042
  2. METHOTREXATE [Concomitant]
     Active Substance: METHOTREXATE
     Indication: Product used for unknown indication
     Route: 065

REACTIONS (7)
  - Death [Fatal]
  - Haemoglobin decreased [Fatal]
  - Urinary tract infection bacterial [Fatal]
  - Infection [Fatal]
  - Malaise [Fatal]
  - Product preparation error [Fatal]
  - Inappropriate schedule of product administration [Fatal]
